FAERS Safety Report 6295241-5 (Version None)
Quarter: 2009Q3

REPORT INFORMATION
  Report Type: 
  Country: None (occurrence: None)
  Receive Date: 20090803
  Receipt Date: 20090721
  Transmission Date: 20100115
  Serious: Yes (Hospitalization)
  Sender: FDA-Public Use
  Company Number: BR-AVENTIS-200917450GDDC

PATIENT
  Age: 73 Year
  Sex: Male
  Weight: 62 kg

DRUGS (12)
  1. LANTUS [Suspect]
     Dosage: DOSE: 18 IU WHEN DOES NOT PERFORM HEMODIALYSIS/14 IU WHEN PERFORMS HEMODIALYSIS
     Route: 058
     Dates: start: 20030101
  2. OPTIPEN (INSULIN PUMP) [Suspect]
  3. CORTICOSTEROIDS [Suspect]
  4. ZANIDIP [Concomitant]
     Dosage: DOSE QUANTITY: 1
     Route: 048
  5. PLAVIX [Concomitant]
     Dosage: DOSE QUANTITY: 4
     Route: 048
  6. MONOCORDIL [Concomitant]
     Route: 048
  7. COZAAR [Concomitant]
     Dosage: DOSE QUANTITY: 2
     Route: 048
  8. ATENSINA [Concomitant]
     Dosage: DOSE QUANTITY: 2
     Route: 048
  9. ASPIRIN [Concomitant]
     Dosage: DOSE QUANTITY: 1
     Route: 048
  10. ZOCOR [Concomitant]
     Dosage: DOSE QUANTITY: 1
     Route: 048
  11. COVERSYL                           /00790701/ [Concomitant]
     Dosage: DOSE QUANTITY: 1
     Route: 048
  12. RENAGEL                            /01459902/ [Concomitant]
     Dosage: DOSE QUANTITY: 2
     Route: 048

REACTIONS (2)
  - BLOOD GLUCOSE INCREASED [None]
  - BRONCHOPNEUMONIA [None]
